FAERS Safety Report 16339078 (Version 1)
Quarter: 2019Q2

REPORT INFORMATION
  Report Type: Other
  Country: US (occurrence: US)
  Receive Date: 20190521
  Receipt Date: 20190521
  Transmission Date: 20190711
  Serious: Yes (Other)
  Sender: FDA-Public Use
  Company Number: US-B. BRAUN MEDICAL INC.-2067270

PATIENT
  Age: 76 Year
  Sex: Male

DRUGS (8)
  1. SODIUM CHLORIDE HYPERTONICITY [Concomitant]
     Active Substance: SODIUM CHLORIDE
     Route: 042
  2. FENTANYL. [Concomitant]
     Active Substance: FENTANYL
     Route: 037
  3. HYDROCORTISONE. [Concomitant]
     Active Substance: HYDROCORTISONE
     Route: 042
  4. FENTANYL. [Concomitant]
     Active Substance: FENTANYL
     Route: 042
  5. 1.5% GLYCINE IRRIGATION USP 0264-2302-50 0264-2302-70 [Suspect]
     Active Substance: GLYCINE
     Indication: INTRAOPERATIVE CARE
     Route: 050
  6. MIDAZOLAM [Concomitant]
     Active Substance: MIDAZOLAM HYDROCHLORIDE
     Route: 042
  7. RINGERS LACTATE SOLUTION [Concomitant]
     Route: 042
  8. BUPIVACAINE. [Concomitant]
     Active Substance: BUPIVACAINE
     Route: 037

REACTIONS (2)
  - Hyponatraemia [Recovered/Resolved]
  - Cyanopsia [Recovered/Resolved]
